FAERS Safety Report 4729407-X (Version None)
Quarter: 2005Q3

REPORT INFORMATION
  Report Type: 
  Country: None (occurrence: None)
  Receive Date: 20050728
  Receipt Date: 20050719
  Transmission Date: 20060218
  Serious: Yes (Other)
  Sender: FDA-Public Use
  Company Number: 2005104507

PATIENT
  Sex: Female

DRUGS (5)
  1. PROVERA [Suspect]
     Indication: HORMONE REPLACEMENT THERAPY
     Dates: start: 19930101, end: 19980101
  2. PREMARIN [Suspect]
     Indication: HORMONE REPLACEMENT THERAPY
     Dates: start: 19930101, end: 19980101
  3. ESTRATEST [Suspect]
     Indication: HORMONE REPLACEMENT THERAPY
     Dates: start: 19930101, end: 19980101
  4. ESTRADERM [Suspect]
     Indication: HORMONE REPLACEMENT THERAPY
     Dates: start: 19930101, end: 19980101
  5. ESTRACE [Suspect]
     Indication: HORMONE REPLACEMENT THERAPY
     Dates: start: 19930101, end: 19980101

REACTIONS (1)
  - BREAST CANCER [None]
